FAERS Safety Report 4436159-X (Version None)
Quarter: 2004Q3

REPORT INFORMATION
  Report Type: 
  Country: None (occurrence: None)
  Receive Date: 20040830
  Receipt Date: 20040308
  Transmission Date: 20050211
  Serious: Yes (Life-Threatening, Other)
  Sender: FDA-Public Use
  Company Number: US-BRISTOL-MYERS SQUIBB COMPANY-12527024

PATIENT
  Age: 65 Year
  Sex: Male
  Weight: 63 kg

DRUGS (15)
  1. ERBITUX [Suspect]
     Indication: COLON CANCER
     Route: 042
     Dates: start: 20040305, end: 20040305
  2. BENADRYL [Concomitant]
     Indication: PREMEDICATION
     Dosage: GIVEN PRIOR TO ERBITUX
  3. DECADRON [Concomitant]
     Indication: PREMEDICATION
     Dosage: GIVEN PRIOR TO ERBITUX
  4. ANZEMET [Concomitant]
     Indication: PREMEDICATION
     Dosage: GIVEN PRIOR TO ERBITUX
  5. ENDAL-HD [Concomitant]
  6. RESTORIL [Concomitant]
  7. LOMOTIL [Concomitant]
  8. NEURONTIN [Concomitant]
  9. DILAUDID [Concomitant]
  10. COMPAZINE [Concomitant]
  11. MARINOL [Concomitant]
  12. REGLAN [Concomitant]
  13. SPIRONOLACTONE [Concomitant]
  14. DURAGESIC [Concomitant]
  15. PREVACID [Concomitant]

REACTIONS (1)
  - INFUSION RELATED REACTION [None]
